FAERS Safety Report 5934246-8 (Version None)
Quarter: 2008Q4

REPORT INFORMATION
  Report Type: 
  Country: None (occurrence: None)
  Receive Date: 20081028
  Receipt Date: 20081028
  Transmission Date: 20090506
  Serious: Yes (Other)
  Sender: FDA-Public Use
  Company Number: None

PATIENT
  Age: 23 Year
  Sex: Male
  Weight: 65.7716 kg

DRUGS (1)
  1. CIPROFLOXACIN HCL [Suspect]
     Indication: URINARY TRACT INFECTION
     Dosage: 500MG TICE DAILY PO
     Route: 048
     Dates: start: 20070410, end: 20070420

REACTIONS (18)
  - ANXIETY [None]
  - ARTHRALGIA [None]
  - BACK PAIN [None]
  - BONE PAIN [None]
  - HYPOAESTHESIA [None]
  - INSOMNIA [None]
  - JOINT CREPITATION [None]
  - JOINT STIFFNESS [None]
  - MUSCLE CONTRACTIONS INVOLUNTARY [None]
  - MUSCULAR WEAKNESS [None]
  - MUSCULOSKELETAL STIFFNESS [None]
  - MYODESOPSIA [None]
  - NAUSEA [None]
  - PALPITATIONS [None]
  - PHOTOPHOBIA [None]
  - TENDON DISORDER [None]
  - TENDON PAIN [None]
  - URTICARIA [None]
